FAERS Safety Report 7016650-2 (Version None)
Quarter: 2010Q3

REPORT INFORMATION
  Report Type: 
  Country: None (occurrence: None)
  Receive Date: 20100909
  Receipt Date: 20100727
  Transmission Date: 20110219
  Serious: No
  Sender: FDA-Public Use
  Company Number: 2010SP041255

PATIENT
  Age: 26 Year
  Sex: Male

DRUGS (2)
  1. SAPHRIS [Suspect]
     Indication: SCHIZOPHRENIA
     Dosage: 5 MG;BID;SL, 10 MG;BID;SL,
     Route: 060
     Dates: start: 20100629
  2. INVEGA (CON.) [Concomitant]

REACTIONS (2)
  - NAUSEA [None]
  - VOMITING [None]
